FAERS Safety Report 24771550 (Version 1)
Quarter: 2024Q4

REPORT INFORMATION
  Report Type: Spontaneous
  Country: GB (occurrence: None)
  Receive Date: 20241224
  Receipt Date: 20241224
  Transmission Date: 20250114
  Serious: Yes (Life-Threatening, Hospitalization, Disabling)
  Sender: Public
  Company Number: None

PATIENT
  Age: 43 Year
  Sex: Female
  Weight: 70 kg

DRUGS (2)
  1. VENLAFAXINE HYDROCHLORIDE [Suspect]
     Active Substance: VENLAFAXINE HYDROCHLORIDE
     Indication: Anxiety
     Dates: start: 20140801
  2. SERTRALINE [Suspect]
     Active Substance: SERTRALINE HYDROCHLORIDE

REACTIONS (12)
  - Withdrawal syndrome [None]
  - Anxiety [None]
  - Suicidal ideation [None]
  - Therapy change [None]
  - Dyskinesia [None]
  - Sensitive skin [None]
  - Hyperacusis [None]
  - Insomnia [None]
  - Drug ineffective [None]
  - Therapy cessation [None]
  - Quality of life decreased [None]
  - Social problem [None]

NARRATIVE: CASE EVENT DATE: 20240209
